FAERS Safety Report 8568922-8 (Version None)
Quarter: 2012Q3

REPORT INFORMATION
  Report Type: 
  Country: None (occurrence: None)
  Receive Date: 20120803
  Receipt Date: 20120413
  Transmission Date: 20120928
  Serious: No
  Sender: FDA-Public Use
  Company Number: US-ABBOTT-12P-163-0925319-00

PATIENT
  Sex: Female
  Weight: 79.904 kg

DRUGS (5)
  1. ASPIRIN [Concomitant]
     Indication: PRODUCT USED FOR UNKNOWN INDICATION
  2. NIASPAN [Suspect]
     Indication: ARTERIAL DISORDER
     Dosage: AT BEDTIME
     Dates: start: 20120301
  3. BONIVA [Concomitant]
     Indication: PRODUCT USED FOR UNKNOWN INDICATION
  4. RAMIPRIL [Concomitant]
     Indication: PRODUCT USED FOR UNKNOWN INDICATION
  5. CADUET [Concomitant]
     Indication: PRODUCT USED FOR UNKNOWN INDICATION

REACTIONS (2)
  - NAUSEA [None]
  - HEADACHE [None]
